FAERS Safety Report 24652316 (Version 1)
Quarter: 2024Q4

REPORT INFORMATION
  Report Type: Spontaneous
  Country: US (occurrence: None)
  Receive Date: 20241121
  Receipt Date: 20241121
  Transmission Date: 20250114
  Serious: Yes (Death)
  Sender: Public
  Company Number: None

PATIENT
  Age: 90 Year
  Sex: Female

DRUGS (1)
  1. COLLAGENASE SANTYL [Suspect]
     Active Substance: COLLAGENASE CLOSTRIDIUM HISTOLYTICUM
     Indication: Wound
     Dosage: OTHER QUANTITY : 6.7CM AND 3.1CM  GRAM(S) - GM;?FREQUENCY : DAILY;?
     Route: 061
     Dates: start: 20240927

REACTIONS (1)
  - Death [None]

NARRATIVE: CASE EVENT DATE: 20241121
